FAERS Safety Report 15084540 (Version 1)
Quarter: 2018Q2

REPORT INFORMATION
  Report Type: Spontaneous
  Country: US (occurrence: US)
  Receive Date: 20180628
  Receipt Date: 20180628
  Transmission Date: 20180711
  Serious: Yes (Other)
  Sender: FDA-Public Use
  Company Number: PHEH2018US025724

PATIENT
  Sex: Female

DRUGS (5)
  1. IBRANCE [Suspect]
     Active Substance: PALBOCICLIB
     Indication: HEPATIC LESION
     Dosage: 75 MG, QD (FOR 28 DAYS)
     Route: 065
  2. IBRANCE [Suspect]
     Active Substance: PALBOCICLIB
     Indication: BREAST CANCER STAGE IV
  3. LETROZOLE. [Suspect]
     Active Substance: LETROZOLE
     Indication: BREAST CANCER STAGE IV
  4. LETROZOLE. [Suspect]
     Active Substance: LETROZOLE
     Indication: HEPATIC LESION
     Dosage: UNK UNK, QD
     Route: 065
  5. LISINOPRIL. [Concomitant]
     Active Substance: LISINOPRIL
     Indication: HYPERTENSION
     Dosage: 20 MG, BID
     Route: 065

REACTIONS (4)
  - Skin exfoliation [Unknown]
  - Epistaxis [Unknown]
  - Rash [Unknown]
  - Subcutaneous abscess [Unknown]
